FAERS Safety Report 5625069-8 (Version None)
Quarter: 2008Q1

REPORT INFORMATION
  Report Type: 
  Country: None (occurrence: None)
  Receive Date: 20080213
  Receipt Date: 20080206
  Transmission Date: 20080703
  Serious: Yes (Hospitalization)
  Sender: FDA-Public Use
  Company Number: GB-ABBOTT-08P-167-0437298-00

PATIENT
  Age: 21 Year
  Sex: Male
  Weight: 114 kg

DRUGS (1)
  1. REDUCTIL 10MG [Suspect]
     Indication: OBESITY
     Dates: start: 20071101, end: 20080101

REACTIONS (1)
  - INTRACRANIAL PRESSURE INCREASED [None]
